FAERS Safety Report 4524454-5 (Version None)
Quarter: 2004Q4

REPORT INFORMATION
  Report Type: 
  Country: None (occurrence: None)
  Receive Date: 20041116
  Receipt Date: 20040816
  Transmission Date: 20050328
  Serious: No
  Sender: FDA-Public Use
  Company Number: PHEH2004US08881

PATIENT
  Age: 54 Year
  Sex: Female

DRUGS (1)
  1. GLEEVEC [Suspect]
     Indication: GASTROINTESTINAL STROMAL TUMOUR
     Dosage: SEE IMAGE
     Route: 048
     Dates: start: 20020917

REACTIONS (4)
  - ABDOMINAL PAIN [None]
  - ADVERSE EVENT [None]
  - TREATMENT NONCOMPLIANCE [None]
  - UNEXPECTED THERAPEUTIC DRUG EFFECT [None]
